FAERS Safety Report 13350131 (Version 1)
Quarter: 2017Q1

REPORT INFORMATION
  Report Type: Spontaneous
  Country: US (occurrence: US)
  Receive Date: 20170317
  Receipt Date: 20170317
  Transmission Date: 20170429
  Serious: Yes (Other)
  Sender: FDA-Public Use
  Company Number: None

PATIENT
  Age: 51 Year
  Sex: Female

DRUGS (14)
  1. MYCOPHENOLATE [Suspect]
     Active Substance: MYCOPHENOLIC ACID
     Indication: RENAL TRANSPLANT
     Route: 048
     Dates: start: 20120817
  2. XANAX [Concomitant]
     Active Substance: ALPRAZOLAM
  3. OMEPRAZOLE. [Concomitant]
     Active Substance: OMEPRAZOLE
  4. ALLPURINOL [Concomitant]
     Active Substance: ALLOPURINOL
  5. CLARITIN [Concomitant]
     Active Substance: LORATADINE
  6. VENTOLIN [Concomitant]
     Active Substance: ALBUTEROL SULFATE
  7. OXYCODONE [Concomitant]
     Active Substance: OXYCODONE
  8. OXYCONTIN [Concomitant]
     Active Substance: OXYCODONE HYDROCHLORIDE
  9. CYCLOSPORINE. [Suspect]
     Active Substance: CYCLOSPORINE
     Indication: RENAL TRANSPLANT
     Route: 048
     Dates: start: 20120804
  10. LOPRESSOR [Concomitant]
     Active Substance: METOPROLOL TARTRATE
  11. CLONIDINE. [Concomitant]
     Active Substance: CLONIDINE
  12. BACLOFEN. [Concomitant]
     Active Substance: BACLOFEN
  13. BUMEX [Concomitant]
     Active Substance: BUMETANIDE
  14. PREDNISONE. [Concomitant]
     Active Substance: PREDNISONE

REACTIONS (2)
  - Condition aggravated [None]
  - Precancerous cells present [None]

NARRATIVE: CASE EVENT DATE: 201703
